FAERS Safety Report 14551768 (Version 2)
Quarter: 2018Q1

REPORT INFORMATION
  Report Type: Spontaneous
  Country: DK (occurrence: DK)
  Receive Date: 20180220
  Receipt Date: 20180222
  Transmission Date: 20180509
  Serious: Yes (Death)
  Sender: FDA-Public Use
  Company Number: DK-ABBVIE-18S-044-2262620-00

PATIENT
  Age: 82 Year
  Sex: Male
  Weight: 60 kg

DRUGS (6)
  1. RAMIPRIL ACTAVIS [Concomitant]
     Active Substance: RAMIPRIL
     Indication: HYPERTENSION
     Dosage: 5 MG, QD, STYRKE: 5 MG
     Route: 048
     Dates: start: 20120924
  2. ALENDRONAT AUROBINDO [Concomitant]
     Indication: OSTEOPOROSIS
     Dosage: 70 MG,7 DAY, STYRKE: 70 MG.^STARTDATO UKENDT, MEN F?R 14NOV2016
     Route: 048
  3. KLACID [Suspect]
     Active Substance: CLARITHROMYCIN
     Indication: HELICOBACTER GASTRITIS
     Dosage: 1000 MG, QD, STYRKE: 500MG.
     Route: 048
     Dates: start: 20180115
  4. OXYCODONE SANDOZ [Concomitant]
     Indication: PAIN
     Dosage: 120 MG, QD, STYRKE: 60 MG
     Route: 048
     Dates: start: 20160622
  5. METHOTREXATE (METHOTREXATE SODIUM) [Concomitant]
     Active Substance: METHOTREXATE SODIUM
     Indication: ARTHRITIS
     Dosage: 20 MG, QW, DOSIS: 8 TABLETTER MANDAG HVER UGE.^STYRKE: 2,5 MG
     Route: 048
     Dates: start: 20150715
  6. AMLODIPIN SANDOZ [Concomitant]
     Indication: HYPERTENSION
     Dosage: 5 MG, QD, STYRKE: 5 MG
     Route: 048
     Dates: start: 20130516

REACTIONS (2)
  - Cardiac failure [Fatal]
  - Cardiac arrest [Fatal]

NARRATIVE: CASE EVENT DATE: 20180122
